FAERS Safety Report 5582789-1 (Version None)
Quarter: 2008Q1

REPORT INFORMATION
  Report Type: 
  Country: None (occurrence: None)
  Receive Date: 20080107
  Receipt Date: 20071228
  Transmission Date: 20080703
  Serious: Yes (Death, Other)
  Sender: FDA-Public Use
  Company Number: JP-BRISTOL-MYERS SQUIBB COMPANY-14027205

PATIENT
  Age: 4 Year
  Sex: Male

DRUGS (6)
  1. ENDOXAN [Suspect]
     Indication: BURKITT'S LYMPHOMA
     Dosage: 1 DOSAGE FORM = 9 G/M2; 60MG/M2 ADMINISTERED FOR BONE MARROW CONDITIONG.
  2. ENDOXAN [Suspect]
     Indication: BONE MARROW CONDITIONING REGIMEN
     Dosage: 1 DOSAGE FORM = 9 G/M2; 60MG/M2 ADMINISTERED FOR BONE MARROW CONDITIONG.
  3. ETOPOSIDE [Suspect]
     Indication: BURKITT'S LYMPHOMA
  4. EPIRUBICIN [Suspect]
     Indication: BURKITT'S LYMPHOMA
  5. MITOXANTRONE [Concomitant]
  6. IDARUBICIN HCL [Concomitant]

REACTIONS (2)
  - ACUTE MYELOID LEUKAEMIA [None]
  - DEATH [None]
